FAERS Safety Report 11273341 (Version 1)
Quarter: 2015Q3

REPORT INFORMATION
  Report Type: Spontaneous
  Country: US (occurrence: None)
  Receive Date: 20150714
  Receipt Date: 20150714
  Transmission Date: 20151125
  Serious: No
  Sender: FDA-Public Use
  Company Number: None

PATIENT
  Age: 81 Year
  Sex: Female

DRUGS (1)
  1. METHOTREXATE 25MG/ML TEVA [Suspect]
     Active Substance: METHOTREXATE
     Dosage: 7.5MG, QW, SQ
     Route: 058
     Dates: start: 20140512

REACTIONS (3)
  - Stomatitis [None]
  - Myalgia [None]
  - Bone pain [None]

NARRATIVE: CASE EVENT DATE: 20150701
